FAERS Safety Report 11747646 (Version 2)
Quarter: 2015Q4

REPORT INFORMATION
  Report Type: Report from Study
  Country: US (occurrence: US)
  Receive Date: 20151117
  Receipt Date: 20151222
  Transmission Date: 20160304
  Serious: Yes (Hospitalization)
  Sender: FDA-Public Use
  Company Number: US-VERTEX PHARMACEUTICALS-2015-003794

PATIENT
  Age: 13 Year
  Sex: Female

DRUGS (1)
  1. ORKAMBI [Suspect]
     Active Substance: IVACAFTOR\LUMACAFTOR
     Indication: CYSTIC FIBROSIS
     Dosage: 400/250MG, BID
     Route: 048
     Dates: start: 20150808

REACTIONS (5)
  - Nausea [Unknown]
  - Cough [Recovered/Resolved]
  - Abdominal discomfort [Recovered/Resolved]
  - Bacterial infection [Recovering/Resolving]
  - Pulmonary function test abnormal [Unknown]

NARRATIVE: CASE EVENT DATE: 20150808
